FAERS Safety Report 11876883 (Version 6)
Quarter: 2018Q1

REPORT INFORMATION
  Report Type: Report from Study
  Country: JP (occurrence: JP)
  Receive Date: 20151229
  Receipt Date: 20180126
  Transmission Date: 20180508
  Serious: Yes (Life-Threatening, Hospitalization)
  Sender: FDA-Public Use
  Company Number: JP-EISAI MEDICAL RESEARCH-EC-2015-013186

PATIENT
  Age: 71 Year
  Sex: Female
  Weight: 38 kg

DRUGS (12)
  1. ALFAROL [Suspect]
     Active Substance: ALFACALCIDOL
     Indication: PROPHYLAXIS
     Route: 048
     Dates: end: 20150818
  2. ONEALFA [Suspect]
     Active Substance: ALFACALCIDOL
     Indication: PROPHYLAXIS
     Dosage: UNKNOWN
     Route: 048
  3. LENVIMA [Suspect]
     Active Substance: LENVATINIB
     Route: 048
     Dates: start: 20151222, end: 20160208
  4. LENVIMA [Suspect]
     Active Substance: LENVATINIB
     Route: 048
     Dates: start: 20160220, end: 20160524
  5. LENVIMA [Suspect]
     Active Substance: LENVATINIB
     Route: 048
     Dates: start: 20150820, end: 20151031
  6. LENVIMA [Suspect]
     Active Substance: LENVATINIB
     Route: 048
     Dates: start: 20151110, end: 20151122
  7. LENVIMA [Suspect]
     Active Substance: LENVATINIB
     Route: 048
     Dates: start: 20151128, end: 20151214
  8. CALCIUM LACTATE HYDRATE [Suspect]
     Active Substance: CALCIUM LACTATE
     Indication: PROPHYLAXIS
     Route: 048
     Dates: end: 20150818
  9. LEVOTHYROXINE SODIUM HYDRATE [Concomitant]
     Active Substance: LEVOTHYROXINE SODIUM
  10. LENVIMA [Suspect]
     Active Substance: LENVATINIB
     Indication: PAPILLARY THYROID CANCER
     Route: 048
     Dates: start: 20150702, end: 20150702
  11. LENVIMA [Suspect]
     Active Substance: LENVATINIB
     Route: 048
     Dates: start: 20160622
  12. LENVIMA [Suspect]
     Active Substance: LENVATINIB
     Route: 048
     Dates: start: 20150714, end: 20150818

REACTIONS (2)
  - Hypertension [Not Recovered/Not Resolved]
  - Hypercalcaemia [Recovered/Resolved]

NARRATIVE: CASE EVENT DATE: 20150702
